FAERS Safety Report 5905233-0 (Version None)
Quarter: 2008Q4

REPORT INFORMATION
  Report Type: 
  Country: None (occurrence: None)
  Receive Date: 20081001
  Receipt Date: 20080929
  Transmission Date: 20090506
  Serious: Yes (Other)
  Sender: FDA-Public Use
  Company Number: B0531676A

PATIENT
  Sex: Female

DRUGS (1)
  1. NIQUITIN CQ 4MG LOZENGE [Suspect]
     Dosage: 20LOZ PER DAY
     Route: 002
     Dates: start: 20080215

REACTIONS (6)
  - ABDOMINAL PAIN UPPER [None]
  - DEPENDENCE [None]
  - FEELING JITTERY [None]
  - FLATULENCE [None]
  - INSOMNIA [None]
  - NICOTINE DEPENDENCE [None]
